FAERS Safety Report 14109959 (Version 1)
Quarter: 2017Q4

REPORT INFORMATION
  Report Type: Spontaneous
  Country: US (occurrence: US)
  Receive Date: 20171020
  Receipt Date: 20171020
  Transmission Date: 20180321
  Serious: No
  Sender: FDA-Public Use
  Company Number: US-TEVA-777908ACC

PATIENT
  Sex: Female

DRUGS (1)
  1. MICONAZOLE 7 DAY CREAM [Suspect]
     Active Substance: MICONAZOLE
     Indication: FUNGAL INFECTION
     Route: 065

REACTIONS (1)
  - Infection [Unknown]
